FAERS Safety Report 4387209-0 (Version None)
Quarter: 2004Q2

REPORT INFORMATION
  Report Type: 
  Country: None (occurrence: None)
  Receive Date: 20040630
  Receipt Date: 20040324
  Transmission Date: 20050107
  Serious: Yes (Hospitalization)
  Sender: FDA-Public Use
  Company Number: US-GLAXOSMITHKLINE-A0504311A

PATIENT
  Age: 62 Year
  Sex: Male

DRUGS (3)
  1. ADVAIR HFA [Suspect]
     Indication: ASTHMA
     Dosage: 1PUFF TWICE PER DAY
     Route: 055
     Dates: end: 20030601
  2. BLOOD PRESSURE MEDICATION [Concomitant]
  3. UNSPECIFIED INHALER [Concomitant]

REACTIONS (3)
  - DYSPNOEA [None]
  - RASH ERYTHEMATOUS [None]
  - URTICARIA [None]
